FAERS Safety Report 9561763 (Version 3)
Quarter: 2014Q2

REPORT INFORMATION
  Report Type: Spontaneous
  Country: US (occurrence: US)
  Receive Date: 20130927
  Receipt Date: 20140428
  Transmission Date: 20141212
  Serious: No
  Sender: FDA-Public Use
  Company Number: US-BIOGENIDEC-2013BI063220

PATIENT
  Age: 51 Year
  Sex: Female

DRUGS (11)
  1. TECFIDERA [Suspect]
     Indication: MULTIPLE SCLEROSIS
     Route: 048
     Dates: start: 2013
  2. TECFIDERA [Suspect]
     Indication: MULTIPLE SCLEROSIS
     Route: 048
     Dates: start: 201311
  3. TECFIDERA [Suspect]
     Indication: MULTIPLE SCLEROSIS
     Route: 048
     Dates: start: 201311
  4. TECFIDERA [Suspect]
     Indication: MULTIPLE SCLEROSIS
     Route: 048
     Dates: start: 2013
  5. DETROL LA [Concomitant]
  6. TEMAZEPAM [Concomitant]
  7. FISH OIL [Concomitant]
  8. VITAMIN B [Concomitant]
  9. VITAMIN D [Concomitant]
  10. BACLOFEN [Concomitant]
  11. ZYRTEC [Concomitant]

REACTIONS (5)
  - Abdominal distension [Unknown]
  - Asthenia [Unknown]
  - Stress [Unknown]
  - Diarrhoea [Recovered/Resolved]
  - Flushing [Unknown]
